FAERS Safety Report 20524240 (Version 2)
Quarter: 2022Q1

REPORT INFORMATION
  Report Type: Spontaneous
  Country: JP (occurrence: JP)
  Receive Date: 20220228
  Receipt Date: 20220317
  Transmission Date: 20220423
  Serious: Yes (Other)
  Sender: FDA-Public Use
  Company Number: JP-SA-2022SA063206

PATIENT
  Age: 31 Year
  Sex: Female

DRUGS (4)
  1. DUPIXENT [Suspect]
     Active Substance: DUPILUMAB
     Indication: Dermatitis atopic
     Dosage: 300 MG, QOW
     Route: 058
     Dates: start: 202103, end: 20220219
  2. FLUOROMETHOLONE [Suspect]
     Active Substance: FLUOROMETHOLONE
     Indication: Conjunctivitis allergic
     Dosage: UNK
     Route: 047
     Dates: start: 202107
  3. MYSER [DIFLUPREDNATE] [Concomitant]
     Indication: Dermatitis atopic
     Dosage: UNK
     Route: 065
  4. GLYCOSAMINOGLYCANS [Concomitant]
     Active Substance: GLYCOSAMINOGLYCANS
     Indication: Dermatitis atopic
     Dosage: UNK
     Route: 065

REACTIONS (2)
  - Scleritis [Unknown]
  - Conjunctivitis allergic [Unknown]

NARRATIVE: CASE EVENT DATE: 20210701
